FAERS Safety Report 13111959 (Version 1)
Quarter: 2017Q1

REPORT INFORMATION
  Report Type: Report from Study
  Country: NL (occurrence: NL)
  Receive Date: 20170113
  Receipt Date: 20170113
  Transmission Date: 20170428
  Serious: Yes (Death)
  Sender: FDA-Public Use
  Company Number: NL-ROCHE-1878451

PATIENT
  Sex: Male

DRUGS (2)
  1. ALTEPLASE [Suspect]
     Active Substance: ALTEPLASE
     Route: 013
  2. ALTEPLASE [Suspect]
     Active Substance: ALTEPLASE
     Indication: BASILAR ARTERY OCCLUSION
     Route: 042

REACTIONS (1)
  - Death [Fatal]
